FAERS Safety Report 5365367-9 (Version None)
Quarter: 2007Q2

REPORT INFORMATION
  Report Type: 
  Country: None (occurrence: None)
  Receive Date: 20070621
  Receipt Date: 20070613
  Transmission Date: 20071010
  Serious: Yes (Life-Threatening)
  Sender: FDA-Public Use
  Company Number: IT-ROCHE-502229

PATIENT
  Age: 59 Year
  Sex: Female

DRUGS (2)
  1. ROCEPHIN [Suspect]
     Indication: ANTIBIOTIC PROPHYLAXIS
     Dosage: FORM: VIAL.
     Route: 042
     Dates: start: 20070522, end: 20070522
  2. NIFEDIPINE [Concomitant]
     Route: 060

REACTIONS (5)
  - AGITATION [None]
  - ERYTHEMA [None]
  - HYPOTENSION [None]
  - MALAISE [None]
  - SYNCOPE [None]
